FAERS Safety Report 20634536 (Version 1)
Quarter: 2022Q1

REPORT INFORMATION
  Report Type: Spontaneous
  Country: ES (occurrence: ES)
  Receive Date: 20220325
  Receipt Date: 20220325
  Transmission Date: 20220423
  Serious: Yes (Other)
  Sender: FDA-Public Use
  Company Number: ES-BIOGEN-2022BI01107836

PATIENT
  Age: 44 Year
  Sex: Female

DRUGS (1)
  1. TECFIDERA [Suspect]
     Active Substance: DIMETHYL FUMARATE
     Indication: Multiple sclerosis
     Route: 048
     Dates: start: 201805

REACTIONS (3)
  - Nonalcoholic fatty liver disease [Unknown]
  - Hepatic cirrhosis [Unknown]
  - Portal hypertension [Unknown]

NARRATIVE: CASE EVENT DATE: 20220101
